FAERS Safety Report 9254406 (Version 1)
Quarter: 2013Q1

REPORT INFORMATION
  Report Type: Spontaneous
  Country: US (occurrence: None)
  Receive Date: 20121203
  Receipt Date: 20121203
  Transmission Date: 20140127
  Serious: No
  Sender: FDA-Public Use
  Company Number: 2012SP023053

PATIENT
  Age: 27 Year
  Sex: Female
  Weight: 82.5 kg

DRUGS (2)
  1. NUVARING [Suspect]
     Indication: HORMONE THERAPY
     Dates: start: 2000, end: 2010
  2. NUVARING [Suspect]
     Indication: CONTRACEPTION
     Dates: start: 2000, end: 2010

REACTIONS (13)
  - Pulmonary embolism [None]
  - Thrombosis [None]
  - Deep vein thrombosis [None]
  - Ovarian cyst [None]
  - Irritable bowel syndrome [None]
  - Depression [None]
  - Anticoagulant therapy [None]
  - Breast cellulitis [None]
  - Subcutaneous abscess [None]
  - Staphylococcal infection [None]
  - Dysmenorrhoea [None]
  - Menorrhagia [None]
  - Drug level fluctuating [None]
